FAERS Safety Report 6429887-8 (Version None)
Quarter: 2009Q4

REPORT INFORMATION
  Report Type: 
  Country: None (occurrence: None)
  Receive Date: 20091106
  Receipt Date: 20091102
  Transmission Date: 20100525
  Serious: Yes (Death)
  Sender: FDA-Public Use
  Company Number: US-JNJFOC-20091101325

PATIENT
  Sex: Female
  Weight: 71.22 kg

DRUGS (8)
  1. DURAGESIC-100 [Suspect]
     Indication: DRUG USE FOR UNKNOWN INDICATION
     Route: 062
  2. ALPRAZOLAM [Concomitant]
     Route: 065
  3. CITALOPRAM HYDROBROMIDE [Concomitant]
     Route: 065
  4. DIPHENHYDRAMINE [Concomitant]
     Route: 065
  5. PROPOXYPHENE HCL CAP [Concomitant]
     Route: 065
  6. GABAPENTIN [Concomitant]
     Route: 065
  7. OXYCODONE [Concomitant]
     Route: 065
  8. ACETAMINOPHEN [Concomitant]
     Route: 065

REACTIONS (2)
  - DRUG ADMINISTERED AT INAPPROPRIATE SITE [None]
  - DRUG TOXICITY [None]
